FAERS Safety Report 5210738-4 (Version None)
Quarter: 2006Q4

REPORT INFORMATION
  Report Type: 
  Country: None (occurrence: None)
  Receive Date: 20061130
  Receipt Date: 20060822
  Transmission Date: 20070319
  Serious: Yes (Other)
  Sender: FDA-Public Use
  Company Number: WAES 0608USA05352

PATIENT
  Age: 49 Year
  Sex: Female

DRUGS (5)
  1. FOSAMAX [Suspect]
     Indication: OSTEOPOROSIS
     Dosage: 70 MG/WKY/PO
     Route: 048
     Dates: start: 20010101, end: 20050201
  2. PROZAC [Concomitant]
  3. SINGULAIR [Concomitant]
  4. WELLBUTRIN [Concomitant]
  5. FERROUS SULFATE TAB [Concomitant]

REACTIONS (2)
  - ANAEMIA [None]
  - OSTEONECROSIS [None]
